FAERS Safety Report 5887327-1 (Version None)
Quarter: 2008Q3

REPORT INFORMATION
  Report Type: 
  Country: None (occurrence: None)
  Receive Date: 20080915
  Receipt Date: 20080828
  Transmission Date: 20090109
  Serious: Yes (Hospitalization, Other)
  Sender: FDA-Public Use
  Company Number: 2008SP018104

PATIENT
  Age: 80 Year
  Sex: Female

DRUGS (4)
  1. MIRALAX [Suspect]
     Indication: COLONOSCOPY
     Dosage: 238 GM; ONCE; PO
     Route: 048
     Dates: start: 20080822
  2. MIRALAX [Suspect]
     Indication: OFF LABEL USE
     Dosage: 238 GM; ONCE; PO
     Route: 048
     Dates: start: 20080822
  3. LOVAZA [Suspect]
     Indication: HIGH DENSITY LIPOPROTEIN INCREASED
  4. SINGULAIR (CON.) [Concomitant]

REACTIONS (6)
  - FEELING ABNORMAL [None]
  - HYPERSENSITIVITY [None]
  - LOSS OF CONSCIOUSNESS [None]
  - MEMORY IMPAIRMENT [None]
  - PRURITUS [None]
  - RASH [None]
